FAERS Safety Report 8625069-X (Version None)
Quarter: 2012Q3

REPORT INFORMATION
  Report Type: 
  Country: None (occurrence: None)
  Receive Date: 20120827
  Receipt Date: 20120813
  Transmission Date: 20120928
  Serious: Yes (Hospitalization)
  Sender: FDA-Public Use
  Company Number: SE-009507513-1208SWE007144

PATIENT

DRUGS (6)
  1. CALCICHEW D3 [Concomitant]
  2. WARFARIN SODIUM [Concomitant]
  3. OMEPRAZOLE [Concomitant]
  4. BRICANYL [Concomitant]
     Route: 055
  5. FOSAMAX [Suspect]
     Indication: OSTEOPOROSIS
     Dosage: 70 MG, QW
     Route: 048
     Dates: end: 20120604
  6. ARTELAC [Concomitant]

REACTIONS (1)
  - ANAPHYLACTIC REACTION [None]
